FAERS Safety Report 4491655-4 (Version None)
Quarter: 2004Q4

REPORT INFORMATION
  Report Type: 
  Country: None (occurrence: None)
  Receive Date: 20041103
  Receipt Date: 20041025
  Transmission Date: 20050328
  Serious: Yes (Hospitalization)
  Sender: FDA-Public Use
  Company Number: FR-BRISTOL-MYERS SQUIBB COMPANY-12744918

PATIENT
  Age: 63 Year
  Sex: Female

DRUGS (6)
  1. APROVEL TABS [Suspect]
     Route: 048
     Dates: end: 20040824
  2. VEINAMITOL [Suspect]
     Route: 048
     Dates: start: 20040515, end: 20040824
  3. STILNOX [Suspect]
     Route: 048
  4. TOPALGIC [Suspect]
     Route: 048
     Dates: start: 20040720, end: 20040912
  5. LAMALINE [Suspect]
     Route: 048
     Dates: start: 20040515, end: 20040824
  6. NEURONTIN [Suspect]
     Route: 048
     Dates: start: 20020301, end: 20040912

REACTIONS (3)
  - HAEMATOMA [None]
  - THROMBOCYTOPENIA [None]
  - THROMBOCYTOPENIC PURPURA [None]
